FAERS Safety Report 22014739 (Version 1)
Quarter: 2023Q1

REPORT INFORMATION
  Report Type: Spontaneous
  Country: US (occurrence: US)
  Receive Date: 20230221
  Receipt Date: 20230221
  Transmission Date: 20230418
  Serious: No
  Sender: FDA-Public Use
  Company Number: US-BRISTOL-MYERS SQUIBB COMPANY-2023-024813

PATIENT
  Age: 87 Year
  Sex: Female

DRUGS (1)
  1. LENALIDOMIDE [Suspect]
     Active Substance: LENALIDOMIDE
     Indication: Thrombocytopenia
     Dosage: FREQ: TAKE 1 CAPSULE BY MOUTH DAILY FOR 14 DAYS ON DAYS 1-14 OF EACH 21 DAY CHEMOTHERAPY CYCLE
     Route: 048
     Dates: start: 20220311

REACTIONS (4)
  - Hypoaesthesia [Not Recovered/Not Resolved]
  - Peripheral swelling [Not Recovered/Not Resolved]
  - Paraesthesia [Not Recovered/Not Resolved]
  - Off label use [Unknown]
